FAERS Safety Report 21898517 (Version 1)
Quarter: 2023Q1

REPORT INFORMATION
  Report Type: Spontaneous
  Country: US (occurrence: None)
  Receive Date: 20230121
  Receipt Date: 20230121
  Transmission Date: 20230418
  Serious: Yes (Other)
  Sender: FDA-Public Use
  Company Number: None

PATIENT
  Age: 74 Year
  Sex: Female
  Weight: 72 kg

DRUGS (12)
  1. TIZANIDINE [Suspect]
     Active Substance: TIZANIDINE
     Indication: Muscle spasms
     Dosage: OTHER QUANTITY : 20 TABLET(S);?FREQUENCY : 3 TIMES A DAY;?
     Route: 048
     Dates: start: 20230120, end: 20230120
  2. Symbicort Inhaler BID [Concomitant]
  3. ProAir Inhaler PRN Compounded [Concomitant]
  4. Thyroid Compounded LDN (for immune system) [Concomitant]
  5. Baby Asprin 1 QD (for heart) [Concomitant]
  6. LIPOSOMAL VITAMIN C [Concomitant]
  7. VITAMIN D3 [Concomitant]
     Active Substance: CHOLECALCIFEROL
  8. HAWTHORN EXTRACT [Concomitant]
  9. Lutein and Zeanthin [Concomitant]
  10. Liposomal B complex vitamins [Concomitant]
  11. Boiron Homeopathic Sinus Calm [Concomitant]
  12. Influenzium [Concomitant]

REACTIONS (18)
  - Paraesthesia oral [None]
  - Paraesthesia oral [None]
  - Paraesthesia [None]
  - Pharyngeal paraesthesia [None]
  - Paraesthesia [None]
  - Cough [None]
  - Retching [None]
  - Choking [None]
  - Retching [None]
  - Secretion discharge [None]
  - Dizziness [None]
  - Vertigo [None]
  - Suffocation feeling [None]
  - Dyspnoea [None]
  - Gastrooesophageal reflux disease [None]
  - Oropharyngeal pain [None]
  - Oesophageal stenosis [None]
  - Product complaint [None]

NARRATIVE: CASE EVENT DATE: 20230120
